FAERS Safety Report 4828467-5 (Version None)
Quarter: 2005Q4

REPORT INFORMATION
  Report Type: 
  Country: None (occurrence: None)
  Receive Date: 20051110
  Receipt Date: 20051027
  Transmission Date: 20060501
  Serious: No
  Sender: FDA-Public Use
  Company Number: 02100-JPN-05-0524

PATIENT
  Sex: Female

DRUGS (3)
  1. CILOSTAZOL [Suspect]
     Indication: CEREBRAL INFARCTION
     Dosage: ORAL
     Route: 048
     Dates: start: 20051018
  2. AMLODIPINE BESYLATE [Concomitant]
  3. MECOBALAMIN [Concomitant]

REACTIONS (5)
  - BLOOD PRESSURE DECREASED [None]
  - HYPOAESTHESIA [None]
  - MOVEMENT DISORDER [None]
  - PALPITATIONS [None]
  - TACHYCARDIA [None]
